FAERS Safety Report 10365689 (Version 1)
Quarter: 2014Q3

REPORT INFORMATION
  Report Type: Spontaneous
  Country: US (occurrence: US)
  Receive Date: 20140806
  Receipt Date: 20140806
  Transmission Date: 20150326
  Serious: Yes (Life-Threatening, Other)
  Sender: FDA-Public Use
  Company Number: US-ACTAVIS-2014-16761

PATIENT
  Age: 2 Month
  Sex: Male

DRUGS (5)
  1. FUROSEMIDE (WATSON LABORATORIES) [Interacting]
     Active Substance: FUROSEMIDE
     Indication: PRODUCT USED FOR UNKNOWN INDICATION
     Dosage: 1 MG/KG, BID
     Route: 065
  2. ENALAPRIL (WATSON LABORATORIES) [Interacting]
     Active Substance: ENALAPRIL
     Dosage: 0.05 MG/KG, UNKNOWN
     Route: 048
  3. ENALAPRIL (WATSON LABORATORIES) [Suspect]
     Active Substance: ENALAPRIL
     Indication: PROTEINURIA
     Dosage: 0.005 MG/KG, UNKNOWN
     Route: 042
  4. CHLOROTHIAZIDE (WATSON LABORATORIES) [Interacting]
     Active Substance: CHLOROTHIAZIDE
     Indication: PRODUCT USED FOR UNKNOWN INDICATION
     Dosage: 10 MG/KG, BID
     Route: 065
  5. ENALAPRIL (WATSON LABORATORIES) [Interacting]
     Active Substance: ENALAPRIL
     Dosage: 0.01 MG/KG, UNKNOWN
     Route: 042

REACTIONS (7)
  - Off label use [Recovered/Resolved]
  - Respiratory failure [None]
  - Renal failure acute [Recovered/Resolved]
  - Hypotension [Unknown]
  - Drug interaction [Recovered/Resolved]
  - Pulmonary hypertension [None]
  - Renal ischaemia [Recovered/Resolved]
